FAERS Safety Report 16296048 (Version 1)
Quarter: 2019Q2

REPORT INFORMATION
  Report Type: Report from Study
  Country: None (occurrence: RO)
  Receive Date: 20190509
  Receipt Date: 20190509
  Transmission Date: 20190711
  Serious: Yes (Hospitalization)
  Sender: FDA-Public Use
  Company Number: RO-ABBVIE-19K-135-2776822-00

PATIENT
  Age: 50 Year
  Sex: Male

DRUGS (5)
  1. ULCAMED [Concomitant]
     Indication: ANORECTAL DISORDER
     Route: 048
  2. HUMIRA [Suspect]
     Active Substance: ADALIMUMAB
     Indication: ANKYLOSING SPONDYLITIS
     Route: 058
     Dates: start: 20170915
  3. DEBRIDAT [Concomitant]
     Active Substance: TRIMEBUTINE MALEATE
     Indication: ANORECTAL DISORDER
     Route: 048
  4. SALOFALK [Concomitant]
     Indication: ANORECTAL DISORDER
     Route: 048
  5. BIOFLU [Concomitant]
     Indication: PROPHYLAXIS
     Route: 048

REACTIONS (2)
  - Renal failure [Recovering/Resolving]
  - Nasopharyngitis [Recovered/Resolved]

NARRATIVE: CASE EVENT DATE: 201903
